FAERS Safety Report 14670188 (Version 1)
Quarter: 2018Q1

REPORT INFORMATION
  Report Type: Spontaneous
  Country: AT (occurrence: AT)
  Receive Date: 20180322
  Receipt Date: 20180322
  Transmission Date: 20180509
  Serious: Yes (Death, Other)
  Sender: FDA-Public Use
  Company Number: AT-CELGENEUS-AUT-20180302903

PATIENT
  Sex: Female

DRUGS (3)
  1. AZACITIDINE. [Suspect]
     Active Substance: AZACITIDINE
     Route: 065
     Dates: end: 201509
  2. AZACITIDINE. [Suspect]
     Active Substance: AZACITIDINE
     Indication: ACUTE MYELOMONOCYTIC LEUKAEMIA
     Route: 065
     Dates: start: 201303
  3. AZACITIDINE. [Suspect]
     Active Substance: AZACITIDINE
     Route: 065
     Dates: start: 201406

REACTIONS (4)
  - Anaemia [Unknown]
  - Acute myelomonocytic leukaemia [Fatal]
  - Pneumocystis jirovecii pneumonia [Unknown]
  - Cytopenia [Unknown]

NARRATIVE: CASE EVENT DATE: 201312
